FAERS Safety Report 21239241 (Version 2)
Quarter: 2022Q3

REPORT INFORMATION
  Report Type: Spontaneous
  Country: US (occurrence: US)
  Receive Date: 20220822
  Receipt Date: 20220906
  Transmission Date: 20221027
  Serious: Yes (Other)
  Sender: FDA-Public Use
  Company Number: US-TEVA-2022-US-2066476

PATIENT
  Age: 53 Year
  Sex: Male

DRUGS (2)
  1. ALBENDAZOLE [Suspect]
     Active Substance: ALBENDAZOLE
     Indication: Abdominal discomfort
     Dosage: APPROXIMATELY 300 TIMES THE STANDARD DOSE OF 400 MG.
     Route: 048
  2. ALBENDAZOLE [Suspect]
     Active Substance: ALBENDAZOLE
     Indication: Diarrhoea

REACTIONS (9)
  - Alopecia [Recovering/Resolving]
  - Syncope [Unknown]
  - Tachycardia [Unknown]
  - Superficial inflammatory dermatosis [Unknown]
  - Follicular disorder [Unknown]
  - Pancytopenia [Recovered/Resolved]
  - Toxicity to various agents [Recovered/Resolved]
  - Intentional product misuse [Unknown]
  - Intentional overdose [Unknown]
